FAERS Safety Report 5455133-8 (Version None)
Quarter: 2007Q3

REPORT INFORMATION
  Report Type: 
  Country: None (occurrence: None)
  Receive Date: 20070914
  Receipt Date: 20070829
  Transmission Date: 20080115
  Serious: Yes (Hospitalization)
  Sender: FDA-Public Use
  Company Number: 2007BI018165

PATIENT
  Age: 45 Year
  Sex: Female
  Weight: 67 kg

DRUGS (3)
  1. AVONEX [Suspect]
     Indication: MULTIPLE SCLEROSIS
     Dosage: QW; IM
     Route: 030
     Dates: start: 20040301, end: 20070721
  2. AVONEX [Suspect]
     Indication: MULTIPLE SCLEROSIS
     Dosage: QW; IM
     Route: 030
     Dates: start: 20070805
  3. BETASERON [Concomitant]

REACTIONS (5)
  - INFLUENZA [None]
  - MYALGIA [None]
  - NAUSEA [None]
  - PNEUMONIA [None]
  - RHINITIS [None]
